FAERS Safety Report 25622830 (Version 3)
Quarter: 2025Q3

REPORT INFORMATION
  Report Type: Report from Study
  Country: US (occurrence: US)
  Receive Date: 20250730
  Receipt Date: 20250917
  Transmission Date: 20251021
  Serious: Yes (Other)
  Sender: MALLINCKRODT
  Company Number: US-MALLINCKRODT-MNK202504429

PATIENT
  Sex: Male

DRUGS (2)
  1. CORTICOTROPIN [Suspect]
     Active Substance: CORTICOTROPIN
     Indication: Noninfective chorioretinitis
     Route: 058
     Dates: start: 20220707
  2. CORTICOTROPIN [Suspect]
     Active Substance: CORTICOTROPIN
     Dosage: 40 UNITS
     Route: 058

REACTIONS (7)
  - Cataract [Unknown]
  - Blood glucose increased [Recovering/Resolving]
  - Myalgia [Unknown]
  - Stress [Unknown]
  - Blood pressure increased [Unknown]
  - Depression [Unknown]
  - Mood swings [Unknown]
